FAERS Safety Report 5084400-5 (Version None)
Quarter: 2006Q3

REPORT INFORMATION
  Report Type: 
  Country: None (occurrence: None)
  Receive Date: 20060817
  Receipt Date: 20060817
  Transmission Date: 20061208
  Serious: Yes (Hospitalization)
  Sender: FDA-Public Use
  Company Number: None

PATIENT
  Sex: Female
  Weight: 50 kg

DRUGS (3)
  1. KETEK [Suspect]
     Indication: LYME DISEASE
     Dosage: 400 MG ONCE DAILY PO
     Route: 048
  2. CEFTRIAZONE [Concomitant]
  3. MEPRON [Concomitant]

REACTIONS (3)
  - NAUSEA [None]
  - TRANSAMINASES INCREASED [None]
  - VOMITING [None]
